FAERS Safety Report 5567634-2 (Version None)
Quarter: 2007Q4

REPORT INFORMATION
  Report Type: 
  Country: None (occurrence: None)
  Receive Date: 20071219
  Receipt Date: 20071207
  Transmission Date: 20080405
  Serious: Yes (Other)
  Sender: FDA-Public Use
  Company Number: US-PFIZER INC-2007104098

PATIENT
  Sex: Female

DRUGS (6)
  1. DILANTIN [Suspect]
     Indication: CONVULSION
  2. LORAZEPAM [Concomitant]
     Indication: CONVULSION
  3. OXYCODONE HCL [Concomitant]
  4. OYSTER SHELL CALCIUM [Concomitant]
  5. OMEPRAZOLE [Concomitant]
  6. TOPAMAX [Concomitant]

REACTIONS (1)
  - CONVULSION [None]
